FAERS Safety Report 4710271-X (Version None)
Quarter: 2005Q3

REPORT INFORMATION
  Report Type: 
  Country: None (occurrence: None)
  Receive Date: 20050711
  Receipt Date: 20050628
  Transmission Date: 20060218
  Serious: Yes (Hospitalization)
  Sender: FDA-Public Use
  Company Number: JP-JNJFOC-20050700258

PATIENT
  Sex: Female
  Weight: 47 kg

DRUGS (7)
  1. REMICADE [Suspect]
     Route: 042
  2. REMICADE [Suspect]
     Indication: CROHN'S DISEASE
     Route: 042
  3. PENTASA [Concomitant]
     Route: 049
  4. BIOFERMIN [Concomitant]
     Route: 049
  5. BIOFERMIN [Concomitant]
     Route: 049
  6. BIOFERMIN [Concomitant]
     Route: 049
  7. IMURAN [Concomitant]
     Route: 049

REACTIONS (7)
  - ANGIONEUROTIC OEDEMA [None]
  - CYANOSIS [None]
  - DYSPNOEA [None]
  - FLUSHING [None]
  - INFUSION RELATED REACTION [None]
  - NAUSEA [None]
  - PYREXIA [None]
